FAERS Safety Report 25498031 (Version 1)
Quarter: 2025Q3

REPORT INFORMATION
  Report Type: Spontaneous
  Country: US (occurrence: US)
  Receive Date: 20250701
  Receipt Date: 20250701
  Transmission Date: 20251021
  Serious: Yes (Hospitalization, Other)
  Sender: LEGACY PHARMACEUTICAL PACKAGING
  Company Number: US-LEGACY PHARMA INC. SEZC-LGP202506-000203

PATIENT
  Age: 44 Year
  Sex: Male

DRUGS (6)
  1. ATROPINE SULFATE\DIFENOXIN HYDROCHLORIDE [Suspect]
     Active Substance: ATROPINE SULFATE\DIFENOXIN HYDROCHLORIDE
     Indication: Salivary hypersecretion
     Route: 060
  2. TROSPIUM [Suspect]
     Active Substance: TROSPIUM
     Indication: Product used for unknown indication
     Route: 048
  3. BACLOFEN [Concomitant]
     Active Substance: BACLOFEN
     Indication: Product used for unknown indication
     Route: 048
  4. DANTROLENE [Concomitant]
     Active Substance: DANTROLENE
     Indication: Product used for unknown indication
     Route: 048
  5. GABAPENTIN [Concomitant]
     Active Substance: GABAPENTIN
     Indication: Product used for unknown indication
     Route: 048
  6. VENLAFAXINE [Concomitant]
     Active Substance: VENLAFAXINE HYDROCHLORIDE
     Indication: Product used for unknown indication
     Dosage: EXTENDED RELEASE

REACTIONS (16)
  - Anticholinergic syndrome [Recovered/Resolved]
  - Hallucination, visual [Recovered/Resolved]
  - Agitation [Recovered/Resolved]
  - Unresponsive to stimuli [Recovered/Resolved]
  - Hyperhidrosis [Recovered/Resolved]
  - Plethoric face [Recovered/Resolved]
  - Blepharospasm [Recovered/Resolved]
  - Posture abnormal [Recovered/Resolved]
  - Muscle rigidity [Recovered/Resolved]
  - Muscle strain [Recovered/Resolved]
  - Swelling face [Recovered/Resolved]
  - Mydriasis [Recovered/Resolved]
  - Anisocoria [Recovered/Resolved]
  - Flushing [Recovered/Resolved]
  - Product use issue [Unknown]
  - Product use in unapproved indication [Unknown]
